FAERS Safety Report 8887617 (Version 1)
Quarter: 2012Q4

REPORT INFORMATION
  Report Type: Spontaneous
  Country: US (occurrence: None)
  Receive Date: 20121101
  Receipt Date: 20121101
  Transmission Date: 20130627
  Serious: No
  Sender: FDA-Public Use
  Company Number: None

PATIENT
  Age: 46 Year
  Sex: Female
  Weight: 166.47 kg

DRUGS (1)
  1. ICY HOT [Suspect]
     Indication: NECK STIFFNESS

REACTIONS (1)
  - Application site burn [None]
